FAERS Safety Report 25268560 (Version 1)
Quarter: 2025Q2

REPORT INFORMATION
  Report Type: Spontaneous
  Country: DE (occurrence: None)
  Receive Date: 20250503
  Receipt Date: 20250503
  Transmission Date: 20250716
  Serious: Yes (Other)
  Sender: FDA-CTU
  Company Number: None

PATIENT
  Age: 22 Year
  Sex: Male
  Weight: 105 kg

DRUGS (5)
  1. SERTRALINE [Suspect]
     Active Substance: SERTRALINE HYDROCHLORIDE
     Indication: Depression
     Dosage: 1 CAPSULE(S) DAILY ORAL
     Route: 048
     Dates: start: 20080601, end: 20120601
  2. PAROXETINE [Suspect]
     Active Substance: PAROXETINE
  3. VENLAFAXINE [Suspect]
     Active Substance: VENLAFAXINE HYDROCHLORIDE
  4. VITAMIN D [Concomitant]
     Active Substance: VITAMIN D NOS
  5. FISH OIL [Concomitant]
     Active Substance: FISH OIL

REACTIONS (6)
  - Sexual dysfunction [None]
  - Loss of libido [None]
  - Erectile dysfunction [None]
  - Weight increased [None]
  - Increased appetite [None]
  - Hyperhidrosis [None]

NARRATIVE: CASE EVENT DATE: 20080601
